FAERS Safety Report 5743810-0 (Version None)
Quarter: 2008Q2

REPORT INFORMATION
  Report Type: 
  Country: None (occurrence: None)
  Receive Date: 20080516
  Receipt Date: 20080506
  Transmission Date: 20081010
  Serious: Yes (Congenital Anomaly)
  Sender: FDA-Public Use
  Company Number: ADE2008-0200

PATIENT
  Sex: Male

DRUGS (6)
  1. SERTRALINE [Suspect]
     Indication: DEPRESSION
     Dosage: 100MG QD TRANSPLACENTAL
     Route: 064
     Dates: start: 20050701, end: 20050901
  2. SERTRALINE [Suspect]
     Indication: DEPRESSION
     Dosage: 100 MG QD TRANSPLACENTAL
     Route: 064
     Dates: start: 20051201, end: 20060201
  3. AMOXICILLIN [Concomitant]
  4. CEPHALEXIN [Concomitant]
  5. VENLAFAXINE HCL [Suspect]
     Indication: DEPRESSION
     Dosage: SEE IMAGE
     Route: 064
     Dates: start: 20060201, end: 20060301
  6. VENLAFAXINE HCL [Suspect]
     Indication: DEPRESSION
     Dosage: SEE IMAGE
     Route: 064
     Dates: start: 20060301

REACTIONS (8)
  - ABNORMAL PALMAR/PLANTAR CREASES [None]
  - CAESAREAN SECTION [None]
  - CONGENITAL ANOMALY [None]
  - EAR MALFORMATION [None]
  - HEAD DEFORMITY [None]
  - MATERNAL DRUGS AFFECTING FOETUS [None]
  - POLYHYDRAMNIOS [None]
  - UNSTABLE FOETAL LIE [None]
